FAERS Safety Report 17382722 (Version 1)
Quarter: 2020Q1

REPORT INFORMATION
  Report Type: Spontaneous
  Country: US (occurrence: US)
  Receive Date: 20200206
  Receipt Date: 20200206
  Transmission Date: 20200409
  Serious: No
  Sender: FDA-Public Use
  Company Number: US-ABBVIE-19K-163-2962731-00

PATIENT
  Age: 66 Year
  Sex: Female
  Weight: 96.25 kg

DRUGS (4)
  1. PROLIA [Concomitant]
     Active Substance: DENOSUMAB
     Indication: BONE DISORDER
  2. VITAMIN D [Concomitant]
     Active Substance: VITAMIN D NOS
     Indication: VITAMIN SUPPLEMENTATION
  3. HUMIRA [Suspect]
     Active Substance: ADALIMUMAB
     Indication: OSTEOARTHRITIS
     Route: 058
  4. HUMIRA [Suspect]
     Active Substance: ADALIMUMAB
     Indication: RHEUMATOID ARTHRITIS
     Route: 058
     Dates: start: 2007

REACTIONS (6)
  - Off label use [Unknown]
  - Peripheral swelling [Not Recovered/Not Resolved]
  - Device issue [Unknown]
  - Pain in extremity [Not Recovered/Not Resolved]
  - Hypertension [Unknown]
  - Injection site haemorrhage [Recovered/Resolved]

NARRATIVE: CASE EVENT DATE: 201909
